FAERS Safety Report 13062504 (Version 2)
Quarter: 2017Q1

REPORT INFORMATION
  Report Type: Spontaneous
  Country: US (occurrence: US)
  Receive Date: 20161226
  Receipt Date: 20170127
  Transmission Date: 20170428
  Serious: No
  Sender: FDA-Public Use
  Company Number: US-LUNDBECK-DKLU2023843

PATIENT
  Age: 78 Year
  Sex: Male

DRUGS (1)
  1. NORTHERA [Suspect]
     Active Substance: DROXIDOPA
     Indication: PRODUCT USED FOR UNKNOWN INDICATION
     Route: 065
     Dates: start: 20161203

REACTIONS (6)
  - Dizziness [Unknown]
  - Pruritus [Unknown]
  - Presyncope [Unknown]
  - Condition aggravated [Unknown]
  - Asthenia [Unknown]
  - Dizziness postural [Unknown]

NARRATIVE: CASE EVENT DATE: 201612
